FAERS Safety Report 10498906 (Version 2)
Quarter: 2014Q4

REPORT INFORMATION
  Report Type: Spontaneous
  Country: US (occurrence: US)
  Receive Date: 20141006
  Receipt Date: 20141216
  Transmission Date: 20150528
  Serious: Yes (Hospitalization, Other)
  Sender: FDA-Public Use
  Company Number: US-PFIZER INC-2014271595

PATIENT
  Age: 62 Year
  Sex: Female
  Weight: 90 kg

DRUGS (20)
  1. GLYBURIDE / METFORMIN [Concomitant]
     Dosage: 5MG/500 MG, 2 DF, 2X/DAY
  2. MELOXICAM. [Concomitant]
     Active Substance: MELOXICAM
     Dosage: 15 MG, 1X/DAY
  3. GLUCOVANCE [Concomitant]
     Active Substance: GLYBURIDE\METFORMIN HYDROCHLORIDE
     Dosage: 2 DF, 2X/DAY (GLIBENCLAMIDE 5 MG, METFORMIN HYDROCHLORIDE 500 MG)
     Route: 048
     Dates: start: 20140523
  4. PRISTIQ EXTENDED RELEASE [Suspect]
     Active Substance: DESVENLAFAXINE SUCCINATE
     Dosage: UNK
     Route: 048
  5. ATENOLOL. [Concomitant]
     Active Substance: ATENOLOL
     Indication: BLOOD PRESSURE
     Dosage: 25 MG, 1X/DAY
     Route: 048
     Dates: start: 20140630
  6. TRAMADOL/ACETAMINOPHEN [Concomitant]
     Active Substance: ACETAMINOPHEN\TRAMADOL
     Dosage: 1 DF, 3X/DAY, ^TRAMADOL 37.5 MG/ACETAMINOPHEN 325 MG^
     Route: 048
     Dates: start: 20141021
  7. NOVOLIN [Concomitant]
     Active Substance: INSULIN HUMAN
     Dosage: 70/30 5 UNITS, UNK (AS DIRECTED)
     Route: 058
     Dates: start: 20091109
  8. PRISTIQ EXTENDED RELEASE [Suspect]
     Active Substance: DESVENLAFAXINE SUCCINATE
     Indication: DEPRESSION
     Dosage: 50 MG, DAILY AT BEDTIME
     Route: 048
     Dates: start: 2013
  9. ISOSORBIDE MONONITRATE. [Concomitant]
     Active Substance: ISOSORBIDE MONONITRATE
     Dosage: 3 MG, 1X/DAY
  10. HYDROXYCHLOROQUINE [Concomitant]
     Active Substance: HYDROXYCHLOROQUINE
     Dosage: 200 MG, 2X/DAY
  11. HYDROCODONE [Concomitant]
     Active Substance: HYDROCODONE
     Dosage: ^5 MG/325 MG^
  12. NAPROXEN. [Concomitant]
     Active Substance: NAPROXEN
     Dosage: 500 MG, 1X/DAY
     Route: 048
  13. LOSARTAN [Concomitant]
     Active Substance: LOSARTAN
     Dosage: 50 MG, 1X/DAY
     Route: 048
  14. GABAPENTIN. [Concomitant]
     Active Substance: GABAPENTIN
     Indication: NEUROPATHY PERIPHERAL
     Dosage: 600 MG, 2X/DAY
     Route: 048
  15. EFFIENT [Concomitant]
     Active Substance: PRASUGREL HYDROCHLORIDE
     Dosage: 10 MG, 1X/DAY
     Route: 048
     Dates: start: 20140904
  16. PRAVASTATIN [Concomitant]
     Active Substance: PRAVASTATIN\PRAVASTATIN SODIUM
     Dosage: 10 MG, 1X/DAY
     Route: 048
     Dates: start: 20140904
  17. LEVEMIR [Concomitant]
     Active Substance: INSULIN DETEMIR
     Dosage: 20 UNITS, (AT BEDTIME)
     Route: 058
     Dates: start: 20140922
  18. XANAX [Concomitant]
     Active Substance: ALPRAZOLAM
     Dosage: 0.25 MG, (AS NEEDED 30 DAYS)
     Route: 048
     Dates: start: 20120326
  19. HYDROCHLOROTHIAZIDE. [Concomitant]
     Active Substance: HYDROCHLOROTHIAZIDE
     Dosage: 25 MG, 1X/DAY
     Route: 048
  20. GABAPENTIN. [Concomitant]
     Active Substance: GABAPENTIN
     Dosage: 600 MG, 1X/DAY
     Route: 048

REACTIONS (34)
  - Myocardial infarction [Unknown]
  - Pain in extremity [Unknown]
  - Arthralgia [Unknown]
  - Pharyngitis [Unknown]
  - Appetite disorder [Unknown]
  - Glycosylated haemoglobin increased [Unknown]
  - Hypoaesthesia [Unknown]
  - Gait disturbance [Unknown]
  - Osteoarthritis [Unknown]
  - Myalgia [Unknown]
  - Otitis media [Unknown]
  - Psychotic disorder [Unknown]
  - Fatigue [Unknown]
  - Back pain [Unknown]
  - Asthenia [Unknown]
  - Exercise tolerance decreased [Unknown]
  - Anxiety [Unknown]
  - Constipation [Unknown]
  - Infection [Unknown]
  - Oedema [Unknown]
  - Obesity [Unknown]
  - Hypercholesterolaemia [Unknown]
  - Weight increased [Unknown]
  - Neuropathy peripheral [Unknown]
  - Foot deformity [Unknown]
  - Diarrhoea [Unknown]
  - Insomnia [Unknown]
  - Mononeuritis [Unknown]
  - Oropharyngeal pain [Unknown]
  - Sinusitis [Unknown]
  - Faecal incontinence [Unknown]
  - Paraesthesia [Unknown]
  - Hepatitis [Unknown]
  - Hyperkeratosis [Unknown]

NARRATIVE: CASE EVENT DATE: 20140319
